FAERS Safety Report 12815157 (Version 1)
Quarter: 2016Q4

REPORT INFORMATION
  Report Type: Spontaneous
  Country: US (occurrence: US)
  Receive Date: 20161005
  Receipt Date: 20161005
  Transmission Date: 20170207
  Serious: No
  Sender: FDA-Public Use
  Company Number: US-AMGEN-USASP2015136666

PATIENT
  Age: 72 Year
  Sex: Female

DRUGS (1)
  1. PROLIA [Suspect]
     Active Substance: DENOSUMAB
     Indication: OSTEOPOROSIS POSTMENOPAUSAL
     Dosage: UNK
     Route: 065
     Dates: start: 20150909

REACTIONS (8)
  - Back pain [Recovering/Resolving]
  - Skin exfoliation [Recovered/Resolved]
  - Rash pruritic [Unknown]
  - Dizziness [Unknown]
  - Rash [Recovered/Resolved]
  - Pharyngeal disorder [Recovered/Resolved]
  - Glossodynia [Recovered/Resolved]
  - Erythema [Recovered/Resolved]

NARRATIVE: CASE EVENT DATE: 2015
